FAERS Safety Report 5263687-X (Version None)
Quarter: 2007Q1

REPORT INFORMATION
  Report Type: 
  Country: None (occurrence: None)
  Receive Date: 20070312
  Receipt Date: 20070312
  Transmission Date: 20070707
  Serious: Yes (Other)
  Sender: FDA-Public Use
  Company Number: None

PATIENT

DRUGS (2)
  1. HEPATITIS B IMMUNE GLOBULIN (HUMAN) [Suspect]
     Indication: HEPATITIS B
     Dosage: }220 INTERNATIONAL UNITS
     Dates: start: 20070302
  2. HEPATITIS B IMMUNE GLOBULIN (HUMAN) [Suspect]
     Indication: PROPHYLAXIS
     Dosage: }220 INTERNATIONAL UNITS
     Dates: start: 20070302

REACTIONS (2)
  - CIRCUMSTANCE OR INFORMATION CAPABLE OF LEADING TO MEDICATION ERROR [None]
  - INTERCEPTED DRUG DISPENSING ERROR [None]
